FAERS Safety Report 9788100 (Version 1)
Quarter: 2013Q4

REPORT INFORMATION
  Report Type: Spontaneous
  Country: US (occurrence: None)
  Receive Date: 20131227
  Receipt Date: 20131227
  Transmission Date: 20140711
  Serious: Yes (Hospitalization)
  Sender: FDA-Public Use
  Company Number: None

PATIENT
  Age: 58 Year
  Sex: Male
  Weight: 96.8 kg

DRUGS (5)
  1. BACTRIM [Suspect]
     Indication: CELLULITIS
     Dosage: RECENT 1 TABLET BID PO
     Route: 048
  2. HCTZ [Concomitant]
  3. FISH OIL [Concomitant]
  4. LEVOFLOXACIN [Concomitant]
  5. MUPIROCIN [Concomitant]

REACTIONS (1)
  - Drug hypersensitivity [None]
